FAERS Safety Report 12794888 (Version 2)
Quarter: 2016Q4

REPORT INFORMATION
  Report Type: Spontaneous
  Country: FI (occurrence: FI)
  Receive Date: 20160929
  Receipt Date: 20161021
  Transmission Date: 20170207
  Serious: Yes (Hospitalization, Other)
  Sender: FDA-Public Use
  Company Number: FI-AMGEN-FINSP2016129945

PATIENT
  Age: 68 Year
  Sex: Male

DRUGS (5)
  1. DOCETAXEL. [Concomitant]
     Active Substance: DOCETAXEL
     Dosage: 75 MG/M2, UNK
  2. ABIRATERONE [Concomitant]
     Active Substance: ABIRATERONE
     Dosage: UNK
     Dates: start: 2011
  3. BICALUTAMIDE. [Concomitant]
     Active Substance: BICALUTAMIDE
     Dosage: 50 MG, UNK
     Dates: start: 2009
  4. SAMARIUM (153 SM) LEXIDRONAM [Concomitant]
     Active Substance: SAMARIUM SM-153 LEXIDRONAM
     Dosage: UNK
     Dates: start: 2011
  5. XGEVA [Suspect]
     Active Substance: DENOSUMAB
     Indication: METASTASES TO BONE
     Dosage: UNK
     Route: 065
     Dates: start: 201601

REACTIONS (7)
  - Metastases to spine [Recovering/Resolving]
  - Back pain [Recovering/Resolving]
  - Metastases to bone [Recovering/Resolving]
  - Lymphadenopathy [Recovering/Resolving]
  - Fall [Unknown]
  - Muscular weakness [Recovering/Resolving]
  - Spinal cord compression [Unknown]

NARRATIVE: CASE EVENT DATE: 201604
